FAERS Safety Report 6059830-5 (Version None)
Quarter: 2009Q1

REPORT INFORMATION
  Report Type: 
  Country: None (occurrence: None)
  Receive Date: 20090130
  Receipt Date: 20081111
  Transmission Date: 20090719
  Serious: No
  Sender: FDA-Public Use
  Company Number: US-ABBOTT-08P-163-0487294-00

PATIENT
  Sex: Male

DRUGS (11)
  1. LUPRON DEPOT [Suspect]
     Indication: PROSTATE CANCER
     Dates: start: 20071101
  2. UNKNOWN MEDICATION [Concomitant]
     Indication: DRUG USE FOR UNKNOWN INDICATION
  3. UNKNOWN MEDICATION [Concomitant]
  4. UNKNOWN MEDICATION [Concomitant]
  5. UNKNOWN MEDICATION [Concomitant]
  6. UNKNOWN MEDICATION [Concomitant]
  7. UNKNOWN MEDICATION [Concomitant]
  8. UNKNOWN MEDICATION [Concomitant]
  9. UNKNOWN MEDICATION [Concomitant]
  10. UNKNOWN MEDICATION [Concomitant]
  11. UNKNOWN MEDICATION [Concomitant]

REACTIONS (2)
  - HYPERSENSITIVITY [None]
  - RASH GENERALISED [None]
